FAERS Safety Report 23240380 (Version 1)
Quarter: 2023Q4

REPORT INFORMATION
  Report Type: Spontaneous
  Country: CN (occurrence: CN)
  Receive Date: 20231129
  Receipt Date: 20231129
  Transmission Date: 20240109
  Serious: Yes (Other)
  Sender: FDA-Public Use
  Company Number: None

PATIENT
  Age: 49 Year
  Sex: Female
  Weight: 46.5 kg

DRUGS (3)
  1. CYCLOPHOSPHAMIDE [Suspect]
     Active Substance: CYCLOPHOSPHAMIDE
     Indication: Chemotherapy
     Dosage: 0.83 G, ONE TIME IN ONE DAY, DILUTED WITH 60 ML 0.9% SODIUM CHLORIDE, AT 16:00
     Route: 041
     Dates: start: 20231115, end: 20231115
  2. CYCLOPHOSPHAMIDE [Suspect]
     Active Substance: CYCLOPHOSPHAMIDE
     Indication: Invasive breast carcinoma
  3. SODIUM CHLORIDE [Suspect]
     Active Substance: SODIUM CHLORIDE
     Indication: Medication dilution
     Dosage: 0.9% 60 ML, ONE TIME IN ONE DAY, USED TO DILUTE 0.83G CYCLOPHOSPHAMIDE, AT 16:00
     Route: 041
     Dates: start: 20231115, end: 20231115

REACTIONS (3)
  - Regurgitation [Recovering/Resolving]
  - Nausea [Recovering/Resolving]
  - Dyspepsia [Recovering/Resolving]

NARRATIVE: CASE EVENT DATE: 20231115
